FAERS Safety Report 9775342 (Version 1)
Quarter: 2013Q4

REPORT INFORMATION
  Report Type: Spontaneous
  Country: US (occurrence: None)
  Receive Date: 20131218
  Receipt Date: 20131218
  Transmission Date: 20140711
  Serious: Yes (Life-Threatening, Hospitalization)
  Sender: FDA-Public Use
  Company Number: 2013/215

PATIENT
  Age: 55 Year
  Sex: Female

DRUGS (1)
  1. IBANDRONATE [Suspect]

REACTIONS (4)
  - Syncope [None]
  - Hypokalaemia [None]
  - Ventricular tachycardia [None]
  - Electrocardiogram QT prolonged [None]
